FAERS Safety Report 16771810 (Version 1)
Quarter: 2019Q3

REPORT INFORMATION
  Report Type: Spontaneous
  Country: CA (occurrence: CA)
  Receive Date: 20190904
  Receipt Date: 20190904
  Transmission Date: 20191005
  Serious: Yes (Other)
  Sender: FDA-Public Use
  Company Number: CA-PFIZER INC-2019376771

PATIENT
  Age: 8 Year
  Sex: Female

DRUGS (6)
  1. SODIUM THIOSULFATE [Suspect]
     Active Substance: SODIUM THIOSULFATE
     Indication: CALCINOSIS
     Dosage: UNK
     Route: 061
  2. NAPROXEN. [Suspect]
     Active Substance: NAPROXEN
     Indication: CALCINOSIS
     Dosage: UNK
     Route: 065
  3. SEVELAMER [Suspect]
     Active Substance: SEVELAMER
     Indication: CALCINOSIS
     Dosage: UNK
     Route: 065
  4. ZOLEDRONIC ACID [Suspect]
     Active Substance: ZOLEDRONIC ACID
     Indication: CALCINOSIS
     Dosage: UNK
     Route: 065
  5. ACETAZOLAMIDE. [Suspect]
     Active Substance: ACETAZOLAMIDE
     Indication: CALCINOSIS
     Dosage: UNK
     Route: 065
  6. PROBENECID. [Suspect]
     Active Substance: PROBENECID
     Indication: CALCINOSIS
     Dosage: UNK
     Route: 065

REACTIONS (11)
  - Off label use [Unknown]
  - Product use issue [Unknown]
  - C-reactive protein increased [Unknown]
  - Neoplasm progression [Unknown]
  - Thrombocytosis [Unknown]
  - Pyrexia [Unknown]
  - Calcinosis [Unknown]
  - Drug ineffective [Unknown]
  - Inflammation [Unknown]
  - Leukocytosis [Unknown]
  - Red blood cell sedimentation rate increased [Unknown]
